FAERS Safety Report 9337679 (Version 1)
Quarter: 2013Q2

REPORT INFORMATION
  Report Type: Spontaneous
  Country: US (occurrence: US)
  Receive Date: 20130607
  Receipt Date: 20130607
  Transmission Date: 20140414
  Serious: Yes (Hospitalization, Other)
  Sender: FDA-Public Use
  Company Number: US-JHP PHARMACEUTICALS, LLC-JHP201300331

PATIENT
  Age: 2 Year
  Sex: Female

DRUGS (4)
  1. ADRENALIN [Suspect]
     Indication: HYPERSENSITIVITY
     Route: 042
  2. STEROIDS [Suspect]
     Indication: HYPERSENSITIVITY
  3. PLASMA, FRESH FROZEN [Concomitant]
     Indication: HAEMOLYTIC URAEMIC SYNDROME
  4. DIURETICS [Concomitant]
     Indication: HAEMOLYTIC URAEMIC SYNDROME

REACTIONS (1)
  - Drug ineffective [Recovered/Resolved]
